FAERS Safety Report 5722905-1 (Version None)
Quarter: 2008Q2

REPORT INFORMATION
  Report Type: 
  Country: None (occurrence: None)
  Receive Date: 20080425
  Receipt Date: 20080415
  Transmission Date: 20081010
  Serious: Yes (Other)
  Sender: FDA-Public Use
  Company Number: CHNY2008GB01651

PATIENT
  Age: 71 Year
  Sex: Male

DRUGS (6)
  1. NICOTINELL GUM            (NICOTINE) CHEWABLE GUM [Suspect]
     Indication: SMOKING CESSATION THERAPY
     Dosage: 2 X 2 MG GUMS / DAY, CHEWED
     Route: 002
     Dates: start: 20071201
  2. METFORMIN HCL [Concomitant]
  3. DIHYDROCODEINE COMPOUND [Concomitant]
  4. DICLOFLEX     (DICLOFENAC SODIUM) [Concomitant]
  5. NEOCLARITYN     (DESLORATADINE) [Concomitant]
  6. TRAMADOL HCL [Concomitant]

REACTIONS (1)
  - ANAPHYLACTIC REACTION [None]
